FAERS Safety Report 9455868 (Version 1)
Quarter: 2013Q3

REPORT INFORMATION
  Report Type: Spontaneous
  Country: US (occurrence: US)
  Receive Date: 20130813
  Receipt Date: 20130813
  Transmission Date: 20140515
  Serious: No
  Sender: FDA-Public Use
  Company Number: US-TEVA-425799USA

PATIENT
  Age: 26 Year
  Sex: Female
  Weight: 61.29 kg

DRUGS (1)
  1. NUVIGIL [Suspect]
     Indication: SOMNOLENCE
     Route: 048

REACTIONS (2)
  - Amphetamines positive [Unknown]
  - Off label use [Unknown]
